FAERS Safety Report 10618562 (Version 1)
Quarter: 2014Q4

REPORT INFORMATION
  Report Type: Spontaneous
  Country: US (occurrence: None)
  Receive Date: 20141125
  Receipt Date: 20141125
  Transmission Date: 20150529
  Serious: Yes (Life-Threatening)
  Sender: FDA-Public Use
  Company Number: 20140749

PATIENT
  Age: 27 Year
  Sex: Female

DRUGS (1)
  1. MAGNESIUM SULFATE INJ [Suspect]
     Active Substance: MAGNESIUM SULFATE
     Indication: PREMATURE LABOUR
     Dosage: FOR MORE THAN 1 HOUR
     Route: 042

REACTIONS (11)
  - Caesarean section [None]
  - Dizziness [None]
  - Incorrect dose administered [None]
  - Circumstance or information capable of leading to medication error [None]
  - Device computer issue [None]
  - Toxicity to various agents [None]
  - Unresponsive to stimuli [None]
  - Flushing [None]
  - Dyspnoea [None]
  - Hypotension [None]
  - Cardio-respiratory arrest [None]
